FAERS Safety Report 18705391 (Version 1)
Quarter: 2021Q1

REPORT INFORMATION
  Report Type: Spontaneous
  Country: US (occurrence: US)
  Receive Date: 20210106
  Receipt Date: 20210106
  Transmission Date: 20210419
  Serious: Yes (Life-Threatening, Hospitalization, Other)
  Sender: FDA-Public Use
  Company Number: US-HIKMA PHARMACEUTICALS USA INC.-US-H14001-21-53214

PATIENT
  Age: 32 Year
  Sex: Female

DRUGS (2)
  1. ADALIMUMAB [Suspect]
     Active Substance: ADALIMUMAB
     Indication: CROHN^S DISEASE
     Dosage: UNKNOWN
     Route: 065
  2. PREDNISONE. [Suspect]
     Active Substance: PREDNISONE
     Indication: CROHN^S DISEASE
     Dosage: UNKNOWN
     Route: 048

REACTIONS (5)
  - Intestinal perforation [Recovering/Resolving]
  - Jejunal perforation [Recovering/Resolving]
  - Right ventricular diastolic collapse [Unknown]
  - Pericardial effusion [Unknown]
  - Histoplasmosis disseminated [Unknown]
